FAERS Safety Report 5869708-5 (Version None)
Quarter: 2008Q3

REPORT INFORMATION
  Report Type: 
  Country: None (occurrence: None)
  Receive Date: 20080904
  Receipt Date: 20080827
  Transmission Date: 20090109
  Serious: Yes (Other)
  Sender: FDA-Public Use
  Company Number: DE-ALLERGAN-0808769US

PATIENT

DRUGS (3)
  1. BOTULINUM TOXIN TYPE A [Suspect]
     Indication: NEUROGENIC BLADDER
     Dosage: 750 UNITS, SINGLE
  2. BOTULINUM TOXIN TYPE A [Suspect]
     Indication: URINARY INCONTINENCE
  3. SODIUM CHLORIDE [Concomitant]
     Dosage: UNK, SINGLE

REACTIONS (1)
  - MUSCULAR WEAKNESS [None]
